FAERS Safety Report 23625068 (Version 2)
Quarter: 2024Q1

REPORT INFORMATION
  Report Type: Spontaneous
  Country: BR (occurrence: BR)
  Receive Date: 20240313
  Receipt Date: 20240315
  Transmission Date: 20240410
  Serious: Yes (Other)
  Sender: FDA-Public Use
  Company Number: BR-002147023-NVSC2024BR006158

PATIENT
  Age: 87 Year
  Sex: Female

DRUGS (1)
  1. OLOPATADINE HYDROCHLORIDE [Suspect]
     Active Substance: OLOPATADINE HYDROCHLORIDE
     Indication: Product used for unknown indication
     Dosage: 2.5 ML
     Route: 065

REACTIONS (2)
  - Macular degeneration [Unknown]
  - Vision blurred [Not Recovered/Not Resolved]
